FAERS Safety Report 6554947-0 (Version None)
Quarter: 2010Q1

REPORT INFORMATION
  Report Type: 
  Country: None (occurrence: None)
  Receive Date: 20100126
  Receipt Date: 20100113
  Transmission Date: 20100710
  Serious: Yes (Hospitalization)
  Sender: FDA-Public Use
  Company Number: 2010AL000354

PATIENT
  Age: 81 Year
  Sex: Male

DRUGS (5)
  1. SERTRALINE HYDROCHLORIDE [Suspect]
     Indication: DEPRESSION
     Dosage: 50 MG; QD; PO
     Route: 048
     Dates: start: 20040817, end: 20040907
  2. FERROUS SUL ELX [Suspect]
     Indication: HAEMOGLOBIN DECREASED
     Dosage: 200 MG;TID;PO
     Route: 048
     Dates: start: 20040820
  3. FUROSEMIDE [Concomitant]
  4. LANSOPRAZOLE [Concomitant]
  5. BUMETANIDE [Concomitant]

REACTIONS (1)
  - RASH ERYTHEMATOUS [None]
